FAERS Safety Report 15010803 (Version 1)
Quarter: 2018Q2

REPORT INFORMATION
  Report Type: Spontaneous
  Country: US (occurrence: US)
  Receive Date: 20180522
  Receipt Date: 20180522
  Transmission Date: 20180711
  Serious: No
  Sender: FDA-Public Use
  Company Number: None

PATIENT
  Age: 51 Year
  Sex: Female

DRUGS (1)
  1. HUMIRA [Suspect]
     Active Substance: ADALIMUMAB
     Indication: ILL-DEFINED DISORDER
     Dosage: 1 PEN EVERY OTHER WEEK SUBCUTANEOUSLY
     Route: 058
     Dates: start: 20171205

REACTIONS (3)
  - Abscess [None]
  - Treatment noncompliance [None]
  - Acne [None]

NARRATIVE: CASE EVENT DATE: 20180520
